FAERS Safety Report 11568582 (Version 1)
Quarter: 2015Q3

REPORT INFORMATION
  Report Type: Spontaneous
  Country: US (occurrence: US)
  Receive Date: 20150916
  Receipt Date: 20150916
  Transmission Date: 20151125
  Serious: No
  Sender: FDA-Public Use
  Company Number: US-ELI_LILLY_AND_COMPANY-US200908004757

PATIENT
  Sex: Female

DRUGS (1)
  1. FORTEO [Suspect]
     Active Substance: TERIPARATIDE
     Indication: OSTEOPOROSIS
     Dosage: UNK, UNKNOWN
     Dates: start: 200903

REACTIONS (8)
  - Wrong technique in product usage process [Unknown]
  - Injection site bruising [Recovered/Resolved]
  - Spider vein [Not Recovered/Not Resolved]
  - Varicose vein [Not Recovered/Not Resolved]
  - Injection site pain [Recovered/Resolved]
  - Skin wrinkling [Not Recovered/Not Resolved]
  - Malaise [Not Recovered/Not Resolved]
  - Weight decreased [Not Recovered/Not Resolved]

NARRATIVE: CASE EVENT DATE: 2009
